FAERS Safety Report 7317614-1 (Version None)
Quarter: 2011Q1

REPORT INFORMATION
  Report Type: 
  Country: None (occurrence: None)
  Receive Date: 20110226
  Receipt Date: 20101122
  Transmission Date: 20110831
  Serious: No
  Sender: FDA-Public Use
  Company Number: US-ALLERGAN-1015125US

PATIENT
  Age: 34 Year
  Sex: Female

DRUGS (1)
  1. BOTOX COSMETIC [Suspect]
     Indication: SKIN WRINKLING
     Dosage: 36 UNITS, SINGLE
     Dates: start: 20101112, end: 20101112

REACTIONS (4)
  - PYREXIA [None]
  - DRUG INEFFECTIVE [None]
  - BACK PAIN [None]
  - INFLUENZA LIKE ILLNESS [None]
